FAERS Safety Report 4674611-2 (Version None)
Quarter: 2005Q2

REPORT INFORMATION
  Report Type: 
  Country: None (occurrence: None)
  Receive Date: 20050526
  Receipt Date: 20050514
  Transmission Date: 20051028
  Serious: Yes (Hospitalization)
  Sender: FDA-Public Use
  Company Number: US-GLAXOSMITHKLINE-A0558744A

PATIENT
  Age: 69 Year
  Sex: Male
  Weight: 88.6 kg

DRUGS (1)
  1. ECOTRIN [Suspect]
     Indication: PROPHYLAXIS
     Route: 048
     Dates: start: 19840901

REACTIONS (1)
  - CORONARY ARTERY OCCLUSION [None]
